FAERS Safety Report 21348232 (Version 1)
Quarter: 2022Q3

REPORT INFORMATION
  Report Type: Spontaneous
  Country: DE (occurrence: DE)
  Receive Date: 20220919
  Receipt Date: 20220919
  Transmission Date: 20221026
  Serious: Yes (Hospitalization)
  Sender: FDA-Public Use
  Company Number: DE-NOVARTISPH-NVSC2022DE209115

PATIENT
  Age: 52 Year
  Sex: Male

DRUGS (4)
  1. COTRIM [Suspect]
     Active Substance: SULFAMETHOXAZOLE\TRIMETHOPRIM
     Indication: Product used for unknown indication
     Dosage: 800|160 MG, JEWEILS EINE TABLETTE MONTAG MITTWOCH FREITAG
     Route: 048
  2. CLADRIBINE [Suspect]
     Active Substance: CLADRIBINE
     Indication: Product used for unknown indication
     Dosage: UNK (LETZTE GABE AM DREISSIGSTEN JULI DIESEN JAHRES, INJEKTIONS-/INFUSIONSLOSUNG)
     Route: 058
     Dates: end: 20210730
  3. ACYCLOVIR [Concomitant]
     Active Substance: ACYCLOVIR
     Indication: Product used for unknown indication
     Dosage: 800 MG, QD (1-0-0-0)
     Route: 048
  4. BISOPROLOL [Concomitant]
     Active Substance: BISOPROLOL
     Indication: Product used for unknown indication
     Dosage: 5 MG, QD (0-0-0.5-0)
     Route: 048

REACTIONS (6)
  - Thrombocytopenia [Unknown]
  - Petechiae [Unknown]
  - Leukopenia [Unknown]
  - Erythema [Unknown]
  - Drug eruption [Unknown]
  - Pyrexia [Unknown]
